FAERS Safety Report 4903295-0 (Version None)
Quarter: 2006Q1

REPORT INFORMATION
  Report Type: 
  Country: None (occurrence: None)
  Receive Date: 20060208
  Receipt Date: 20060127
  Transmission Date: 20060701
  Serious: Yes (Hospitalization)
  Sender: FDA-Public Use
  Company Number: US-SANOFI-SYNTHELABO-A03200600535

PATIENT
  Sex: Male

DRUGS (4)
  1. AMBIEN [Suspect]
     Indication: INSOMNIA
     Route: 048
     Dates: start: 20060124, end: 20060125
  2. LISINOPRIL [Concomitant]
     Dosage: UNK
     Route: 048
  3. VITAMINS [Concomitant]
     Dosage: UNK
     Route: 048
  4. NAPROXEN [Concomitant]
     Dosage: UNK
     Route: 048

REACTIONS (3)
  - COORDINATION ABNORMAL [None]
  - HALLUCINATION [None]
  - LOSS OF CONSCIOUSNESS [None]
